FAERS Safety Report 17001761 (Version 2)
Quarter: 2019Q4

REPORT INFORMATION
  Report Type: Report from Study
  Country: US (occurrence: US)
  Receive Date: 20191106
  Receipt Date: 20191115
  Transmission Date: 20200122
  Serious: Yes (Other)
  Sender: FDA-Public Use
  Company Number: US-TEVA-2019-US-1132039

PATIENT
  Sex: Male

DRUGS (1)
  1. EPTIFIBATIDE. [Suspect]
     Active Substance: EPTIFIBATIDE
     Indication: ANTIPLATELET THERAPY
     Dosage: 2 UG/KG/MINUTE ADMINISTERED FOR 6 DAYS
     Route: 041

REACTIONS (2)
  - Haemoglobin decreased [Unknown]
  - Melaena [Unknown]
